FAERS Safety Report 6542223-1 (Version None)
Quarter: 2010Q1

REPORT INFORMATION
  Report Type: 
  Country: None (occurrence: None)
  Receive Date: 20100119
  Receipt Date: 20100112
  Transmission Date: 20100710
  Serious: Yes (Death, Other)
  Sender: FDA-Public Use
  Company Number: B0593328A

PATIENT
  Age: 38 Year
  Sex: Male

DRUGS (7)
  1. RELENZA [Suspect]
     Indication: H1N1 INFLUENZA
     Route: 042
     Dates: start: 20090905
  2. MEROPENEM [Concomitant]
  3. VANCOMYCIN [Concomitant]
  4. SEDATIVES [Concomitant]
  5. IMMUNOSUPPRESSIVE [Concomitant]
  6. ZANAMIVIR [Concomitant]
     Route: 055
  7. OSELTAMIVIR [Concomitant]
     Route: 048

REACTIONS (2)
  - LIVER FUNCTION TEST ABNORMAL [None]
  - SEPSIS [None]
